FAERS Safety Report 22141207 (Version 11)
Quarter: 2025Q3

REPORT INFORMATION
  Report Type: Spontaneous
  Country: US (occurrence: US)
  Receive Date: 20230327
  Receipt Date: 20250825
  Transmission Date: 20251021
  Serious: No
  Sender: SANOFI AVENTIS
  Company Number: US-SA-SAC20230224001161

PATIENT
  Age: 25 Year
  Sex: Female

DRUGS (2)
  1. DUPIXENT [Suspect]
     Active Substance: DUPILUMAB
     Indication: Dermatitis atopic
     Route: 058
  2. DUPIXENT [Suspect]
     Active Substance: DUPILUMAB
     Indication: Eczema
     Dosage: 300 MG, QOW
     Route: 058
     Dates: start: 202302

REACTIONS (17)
  - Skin fissures [Unknown]
  - Skin irritation [Unknown]
  - Injection site haemorrhage [Recovered/Resolved]
  - Sensitive skin [Unknown]
  - Cough [Unknown]
  - Dry skin [Unknown]
  - Injection site mass [Unknown]
  - Miliaria [Unknown]
  - Facial pain [Unknown]
  - Injection site scar [Unknown]
  - Skin discolouration [Unknown]
  - Pruritus [Unknown]
  - Rash erythematous [Unknown]
  - Rash macular [Unknown]
  - Injection site swelling [Unknown]
  - Incorrect dose administered [Unknown]
  - Inappropriate schedule of product administration [Unknown]

NARRATIVE: CASE EVENT DATE: 20230101
